FAERS Safety Report 14914986 (Version 4)
Quarter: 2018Q3

REPORT INFORMATION
  Report Type: Spontaneous
  Country: US (occurrence: US)
  Receive Date: 20180518
  Receipt Date: 20180824
  Transmission Date: 20181010
  Serious: Yes (Death, Hospitalization, Other)
  Sender: FDA-Public Use
  Company Number: US-AMGEN-USASP2018067396

PATIENT
  Age: 69 Year
  Sex: Female
  Weight: 62.6 kg

DRUGS (2)
  1. BLINCYTO [Suspect]
     Active Substance: BLINATUMOMAB
     Indication: PRECURSOR B-LYMPHOBLASTIC LYMPHOMA RECURRENT
     Dosage: 9 MCG (10ML/HR), QD (FOR 1?7 DAYS)
     Route: 042
     Dates: start: 20180426
  2. BLINCYTO [Suspect]
     Active Substance: BLINATUMOMAB
     Dosage: 28 MCG (10ML/HR), QD (FOR 8?28 DAYS)
     Route: 042
     Dates: end: 20180512

REACTIONS (6)
  - Abdominal pain [Unknown]
  - Blood culture positive [Fatal]
  - Tachycardia [Fatal]
  - Dyspnoea [Fatal]
  - Febrile neutropenia [Fatal]
  - Cardio-respiratory arrest [Fatal]

NARRATIVE: CASE EVENT DATE: 20180512
